FAERS Safety Report 25220224 (Version 1)
Quarter: 2025Q2

REPORT INFORMATION
  Report Type: Other
  Country: CA (occurrence: CA)
  Receive Date: 20250421
  Receipt Date: 20250421
  Transmission Date: 20250716
  Serious: Yes (Hospitalization)
  Sender: PFIZER
  Company Number: CA-PFIZER INC-202500081013

PATIENT
  Age: 28 Year
  Sex: Female

DRUGS (4)
  1. CALCIUM CHLORIDE [Suspect]
     Active Substance: CALCIUM CHLORIDE
  2. DOXYLAMINE SUCCINATE AND PYRIDOXINE HYDROCHLORIDE [Concomitant]
     Active Substance: DOXYLAMINE SUCCINATE\PYRIDOXINE HYDROCHLORIDE
  3. FOLIC ACID [Concomitant]
     Active Substance: FOLIC ACID
  4. METOCLOPRAMIDE [Concomitant]
     Active Substance: METOCLOPRAMIDE

REACTIONS (11)
  - Benign neoplasm of thyroid gland [Recovered/Resolved]
  - Hypercalcaemia [Recovered/Resolved]
  - Hyperemesis gravidarum [Recovered/Resolved]
  - Hyperphosphataemia [Recovered/Resolved]
  - Metabolic alkalosis [Recovered/Resolved]
  - Milk-alkali syndrome [Recovered/Resolved]
  - Morning sickness [Recovered/Resolved]
  - Renal impairment [Recovered/Resolved]
  - Renal injury [Recovered/Resolved]
  - Thyroid hormones increased [Recovered/Resolved]
  - Exposure during pregnancy [Recovered/Resolved]
